FAERS Safety Report 9884904 (Version 3)
Quarter: 2014Q2

REPORT INFORMATION
  Report Type: Spontaneous
  Country: MT (occurrence: MT)
  Receive Date: 20140210
  Receipt Date: 20140604
  Transmission Date: 20141212
  Serious: Yes (Other)
  Sender: FDA-Public Use
  Company Number: MT-ORION CORPORATION ORION PHARMA-ENTC2014-0053

PATIENT
  Age: 71 Year
  Sex: Male

DRUGS (7)
  1. STALEVO [Suspect]
     Indication: PARKINSON^S DISEASE
     Dosage: STRENGTH: 100/25/200 MG
     Route: 048
  2. STALEVO [Suspect]
     Dosage: STRENGTH: 100/25/200 MG
     Route: 048
  3. STALEVO [Suspect]
     Dosage: STRENGTH: 100/25/200 MG
     Route: 048
  4. STALEVO [Suspect]
     Dosage: STRENGTH: 100/25/200 MG
     Route: 048
  5. STALEVO [Suspect]
     Dosage: STRENGTH: 100/25/200 MG
     Route: 048
  6. STALEVO [Suspect]
     Dosage: STRENGTH: 100/25/200 MG
     Route: 048
  7. ROPINIROLE [Suspect]
     Indication: PARKINSON^S DISEASE
     Route: 065

REACTIONS (2)
  - Parkinson^s disease [Recovering/Resolving]
  - Hallucination, visual [Recovered/Resolved]
